FAERS Safety Report 7290260-4 (Version None)
Quarter: 2011Q1

REPORT INFORMATION
  Report Type: 
  Country: None (occurrence: None)
  Receive Date: 20110214
  Receipt Date: 20110203
  Transmission Date: 20110831
  Serious: Yes (Hospitalization, Other)
  Sender: FDA-Public Use
  Company Number: US-ASTRAZENECA-2011SE06394

PATIENT
  Sex: Male

DRUGS (2)
  1. MEDICATION FOR BLOOD CLOT [Concomitant]
  2. NEXIUM [Suspect]
     Route: 048

REACTIONS (9)
  - GASTRIC OPERATION [None]
  - GENERAL PHYSICAL HEALTH DETERIORATION [None]
  - COAGULATION TIME PROLONGED [None]
  - MALAISE [None]
  - FOOD POISONING [None]
  - RENAL FAILURE [None]
  - THROMBOSIS [None]
  - DEHYDRATION [None]
  - DRUG DOSE OMISSION [None]
